FAERS Safety Report 22519517 (Version 2)
Quarter: 2023Q2

REPORT INFORMATION
  Report Type: Spontaneous
  Country: US (occurrence: US)
  Receive Date: 20230605
  Receipt Date: 20230628
  Transmission Date: 20230721
  Serious: No
  Sender: FDA-Public Use
  Company Number: US-PFIZER INC-PV202300097318

PATIENT
  Age: 15 Year
  Sex: Male

DRUGS (2)
  1. GENOTROPIN [Suspect]
     Active Substance: SOMATROPIN
     Dosage: 2 MG, ALTERNATE DAY (ALTERNATE 2MG WITH 2.2MG 6 DAYS A WEEK)
     Dates: start: 20230530
  2. GENOTROPIN [Suspect]
     Active Substance: SOMATROPIN
     Dosage: 2.2 MG, ALTERNATE DAY (ALTERNATE 2MG WITH 2.2MG 6 DAYS A WEEK)
     Dates: start: 20230530

REACTIONS (2)
  - Drug dose omission by device [Unknown]
  - Device breakage [Unknown]
